FAERS Safety Report 5267437-2 (Version None)
Quarter: 2007Q1

REPORT INFORMATION
  Report Type: 
  Country: None (occurrence: None)
  Receive Date: 20070312
  Receipt Date: 20070228
  Transmission Date: 20070707
  Serious: Yes (Other)
  Sender: FDA-Public Use
  Company Number: SPV1-2006-00503

PATIENT
  Age: 62 Year
  Sex: Female
  Weight: 88.9 kg

DRUGS (7)
  1. EQUETRO [Suspect]
     Indication: BIPOLAR DISORDER
     Dates: start: 20060301, end: 20060301
  2. VENLAFAXINE HYDROCHLORIDE [Concomitant]
  3. METOPROLOL TARTRATE [Concomitant]
  4. THYROID TAB [Concomitant]
  5. SEROQUEL [Concomitant]
  6. METFORMIN HCL [Concomitant]
  7. HYDROCHLOROTHIAZIDE [Concomitant]

REACTIONS (4)
  - DIZZINESS [None]
  - NAUSEA [None]
  - TERMINAL STATE [None]
  - TREMOR [None]
